FAERS Safety Report 25396743 (Version 1)
Quarter: 2025Q2

REPORT INFORMATION
  Report Type: Spontaneous
  Country: IE (occurrence: IE)
  Receive Date: 20250604
  Receipt Date: 20250604
  Transmission Date: 20250717
  Serious: Yes (Hospitalization, Other)
  Sender: Norvium Bioscience
  Company Number: IE-Norvium Bioscience LLC-080229

PATIENT
  Age: 8 Decade
  Sex: Male

DRUGS (1)
  1. LITHIUM CARBONATE [Suspect]
     Active Substance: LITHIUM CARBONATE
     Indication: Bipolar disorder

REACTIONS (5)
  - Chronic kidney disease [Unknown]
  - Mental impairment [Unknown]
  - End stage renal disease [Unknown]
  - Disease progression [Unknown]
  - Drug withdrawal syndrome [Unknown]
